FAERS Safety Report 21998092 (Version 1)
Quarter: 2023Q1

REPORT INFORMATION
  Report Type: Spontaneous
  Country: US (occurrence: US)
  Receive Date: 20230216
  Receipt Date: 20230216
  Transmission Date: 20230417
  Serious: Yes (Hospitalization)
  Sender: FDA-Public Use
  Company Number: US-AVET LIFESCIENCES LTD-2023-AVET-000041

PATIENT
  Age: 22 Year
  Sex: Female

DRUGS (6)
  1. DEXAMETHASONE [Suspect]
     Active Substance: DEXAMETHASONE
     Indication: Acute lymphocytic leukaemia
     Dosage: UNK
     Dates: start: 20220616
  2. CYTARABINE\METHOTREXATE [Suspect]
     Active Substance: CYTARABINE\METHOTREXATE
     Indication: Acute lymphocytic leukaemia
     Dosage: UNK
     Route: 037
     Dates: start: 20220616
  3. DAUNORUBICIN [Suspect]
     Active Substance: DAUNORUBICIN
     Indication: Acute lymphocytic leukaemia
     Dosage: UNK
     Dates: start: 20220616
  4. VINCRISTINE [Suspect]
     Active Substance: VINCRISTINE
     Indication: Acute lymphocytic leukaemia
     Dosage: UNK
     Dates: start: 20220616
  5. PEG/L-ASPARAGINASE [Suspect]
     Active Substance: PEGASPARGASE
     Indication: Acute lymphocytic leukaemia
     Dosage: UNK
     Dates: start: 20220616
  6. PEG/L-ASPARAGINASE [Suspect]
     Active Substance: PEGASPARGASE
     Dosage: 2,500 U/M2, WITH HER MOST RECENT DOSE ADMINISTERED 7 DAYS PRIOR

REACTIONS (6)
  - Insulin resistance [Recovered/Resolved]
  - Neuropathy peripheral [Recovered/Resolved]
  - Tremor [Recovered/Resolved]
  - Gastritis [Recovered/Resolved]
  - Hyperglycaemic hyperosmolar nonketotic syndrome [Recovered/Resolved]
  - Hypovolaemic shock [Recovered/Resolved]
